FAERS Safety Report 4436406-4 (Version None)
Quarter: 2004Q3

REPORT INFORMATION
  Report Type: 
  Country: None (occurrence: None)
  Receive Date: 20040830
  Receipt Date: 20040505
  Transmission Date: 20050211
  Serious: No
  Sender: FDA-Public Use
  Company Number: US-BRISTOL-MYERS SQUIBB COMPANY-12580338

PATIENT
  Age: 50 Year
  Sex: Male
  Weight: 79 kg

DRUGS (6)
  1. ABILIFY [Suspect]
     Indication: DEPRESSION
     Dosage: INITIATED AT 5 MG/DAY; INC ON 26-APR-2004.
     Route: 048
     Dates: start: 20040325, end: 20040430
  2. LEXAPRO [Concomitant]
  3. BUSPAR [Concomitant]
  4. NEURONTIN [Concomitant]
  5. TRAZODONE HCL [Concomitant]
  6. LIPITOR [Concomitant]

REACTIONS (8)
  - BENIGN PROSTATIC HYPERPLASIA [None]
  - DISTURBANCE IN ATTENTION [None]
  - DYSURIA [None]
  - FATIGUE [None]
  - HEADACHE [None]
  - INSOMNIA [None]
  - SEXUAL DYSFUNCTION [None]
  - VISION BLURRED [None]
